FAERS Safety Report 5575543-8 (Version None)
Quarter: 2007Q4

REPORT INFORMATION
  Report Type: 
  Country: None (occurrence: None)
  Receive Date: 20071227
  Receipt Date: 20071220
  Transmission Date: 20080405
  Serious: Yes (Death)
  Sender: FDA-Public Use
  Company Number: US-MERCK-0712USA08531

PATIENT
  Age: 58 Year
  Sex: Male

DRUGS (3)
  1. MEPHYTON [Suspect]
     Route: 051
  2. PREDNISONE [Concomitant]
     Route: 048
  3. TACROLIMUS [Concomitant]
     Route: 048

REACTIONS (1)
  - NO THERAPEUTIC RESPONSE [None]
